FAERS Safety Report 14653914 (Version 3)
Quarter: 2018Q2

REPORT INFORMATION
  Report Type: Spontaneous
  Country: US (occurrence: US)
  Receive Date: 20180319
  Receipt Date: 20180518
  Transmission Date: 20180711
  Serious: No
  Sender: FDA-Public Use
  Company Number: US-PFIZER INC-2018112079

PATIENT
  Age: 58 Year
  Sex: Female

DRUGS (1)
  1. XELJANZ XR [Suspect]
     Active Substance: TOFACITINIB CITRATE
     Indication: ARTHRITIS
     Dosage: 11 MG, DAILY
     Route: 048
     Dates: end: 201803

REACTIONS (4)
  - Drug ineffective [Unknown]
  - Bacterial infection [Unknown]
  - Rash [Recovered/Resolved]
  - Fungal skin infection [Unknown]

NARRATIVE: CASE EVENT DATE: 20180314
